FAERS Safety Report 5799782-6 (Version None)
Quarter: 2008Q3

REPORT INFORMATION
  Report Type: 
  Country: None (occurrence: None)
  Receive Date: 20080702
  Receipt Date: 20080702
  Transmission Date: 20090109
  Serious: Yes (Other)
  Sender: FDA-Public Use
  Company Number: None

PATIENT
  Age: 49 Year
  Sex: Male

DRUGS (1)
  1. DIGOXIN [Suspect]
     Dosage: TAKE 1 TABLET TWICE A DAY FROM 6/2007
     Dates: start: 20070601

REACTIONS (4)
  - ARRHYTHMIA [None]
  - PALPITATIONS [None]
  - PHARMACEUTICAL PRODUCT COMPLAINT [None]
  - TACHYCARDIA [None]
